FAERS Safety Report 20336938 (Version 7)
Quarter: 2022Q2

REPORT INFORMATION
  Report Type: Spontaneous
  Country: ES (occurrence: ES)
  Receive Date: 20220114
  Receipt Date: 20220516
  Transmission Date: 20220721
  Serious: Yes (Hospitalization, Other)
  Sender: FDA-Public Use
  Company Number: ES-JAZZ-2021-ES-023900

PATIENT
  Age: 56 Year
  Sex: Male

DRUGS (22)
  1. ZEPZELCA [Suspect]
     Active Substance: LURBINECTEDIN
     Indication: Small cell lung cancer
     Dosage: 4 MILLIGRAM
     Route: 042
     Dates: start: 20211111, end: 20211111
  2. ZEPZELCA [Suspect]
     Active Substance: LURBINECTEDIN
     Dosage: 3.31 MILLIGRAM, D1Q3W
     Route: 042
     Dates: start: 20211130
  3. IRINOTECAN [Suspect]
     Active Substance: IRINOTECAN
     Indication: Small cell lung cancer
     Dosage: 150 MILLIGRAM, D1D8Q3W
     Route: 042
     Dates: start: 20211111, end: 20211111
  4. IRINOTECAN [Suspect]
     Active Substance: IRINOTECAN
     Dosage: 124.2 MILLIGRAM, D1D8Q3W
     Route: 042
     Dates: start: 20211130
  5. VILDAGLIPTIN [Concomitant]
     Active Substance: VILDAGLIPTIN
     Indication: Type 2 diabetes mellitus
     Dosage: UNK
     Dates: start: 20190917
  6. METFORMIN HYDROCHLORIDE [Concomitant]
     Active Substance: METFORMIN HYDROCHLORIDE
     Indication: Type 2 diabetes mellitus
     Dosage: UNK
  7. METFORMIN HYDROCHLORIDE [Concomitant]
     Active Substance: METFORMIN HYDROCHLORIDE
     Dosage: UNK
     Dates: start: 20190917
  8. FERPLEX [Concomitant]
     Indication: Anaemia
     Dosage: UNK
     Dates: start: 20190917
  9. TAMSULOSIN [Concomitant]
     Active Substance: TAMSULOSIN
     Indication: Benign prostatic hyperplasia
     Dosage: UNK
  10. ACETAMINOPHEN [Concomitant]
     Active Substance: ACETAMINOPHEN
     Indication: Abdominal pain
     Dosage: UNK
  11. ACETAMINOPHEN [Concomitant]
     Active Substance: ACETAMINOPHEN
     Dosage: FREQUENCY: 4 MILLIGRAMDOSE: 3.31 MILLIGRAM, FREQUENCY: D1Q3WDOSE: 150 MILLIGRAM, FREQUENCY: D1D8Q3WD
  12. RIFAXIMIN [Concomitant]
     Active Substance: RIFAXIMIN
     Indication: Prophylaxis
     Dosage: UNK
     Dates: start: 20200626
  13. ENALAPRIL [Concomitant]
     Active Substance: ENALAPRIL
     Indication: Hypertension
     Dosage: UNK
     Dates: start: 2015
  14. HYDROCHLOROTHIAZIDE [Concomitant]
     Active Substance: HYDROCHLOROTHIAZIDE
     Indication: Hypertension
     Dosage: UNK
     Dates: start: 2015
  15. OMEPRAZOLE [Concomitant]
     Active Substance: OMEPRAZOLE
     Indication: Prophylaxis
     Dosage: UNK
     Dates: start: 20190819
  16. METOCLOPRAMIDE [Concomitant]
     Active Substance: METOCLOPRAMIDE
     Indication: Product used for unknown indication
     Dosage: UNK
  17. ENALAPRIL HIDROCLOROTIAZIDA [Concomitant]
     Indication: Hypertension
     Dosage: UNK
     Dates: start: 2015
  18. TOLVAPTAN [Concomitant]
     Active Substance: TOLVAPTAN
     Indication: Product used for unknown indication
     Dosage: UNK
  19. TRAMADOL [Concomitant]
     Active Substance: TRAMADOL
     Indication: Product used for unknown indication
     Dosage: UNK
  20. EMPAGLIFLOZIN\METFORMIN HYDROCHLORIDE [Concomitant]
     Active Substance: EMPAGLIFLOZIN\METFORMIN HYDROCHLORIDE
     Indication: Product used for unknown indication
     Dosage: UNK
  21. METOCLOPRAMIDE [Concomitant]
     Active Substance: METOCLOPRAMIDE
     Indication: Product used for unknown indication
     Dosage: UNK
     Dates: start: 20190819
  22. METOCLOPRAMIDE [Concomitant]
     Active Substance: METOCLOPRAMIDE
     Dosage: FREQUENCY: 4 MILLIGRAMDOSE: 3.31 MILLIGRAM, FREQUENCY: D1Q3WDOSE: 150 MILLIGRAM, FREQUENCY: D1D8Q3WD

REACTIONS (2)
  - Intestinal obstruction [Recovered/Resolved]
  - Neutropenia [Recovered/Resolved]

NARRATIVE: CASE EVENT DATE: 20211117
